FAERS Safety Report 18347469 (Version 1)
Quarter: 2020Q4

REPORT INFORMATION
  Report Type: Spontaneous
  Country: PL (occurrence: PL)
  Receive Date: 20201006
  Receipt Date: 20201006
  Transmission Date: 20210114
  Serious: Yes (Other)
  Sender: FDA-Public Use
  Company Number: NVSC2020PL263924

PATIENT
  Age: 66 Year
  Sex: Male

DRUGS (7)
  1. OXALIPLATIN. [Suspect]
     Active Substance: OXALIPLATIN
     Dosage: 1 DF, BIW (DOSE REDUCED BY 20%, Q2WK)
     Route: 042
     Dates: start: 2020
  2. VECTIBIX [Suspect]
     Active Substance: PANITUMUMAB
     Dosage: 6 MG/KG, BIW (1 HOURS INFUSIONS)
     Route: 065
  3. LEVOFOLIC [Suspect]
     Active Substance: LEUCOVORIN
     Indication: COLON CANCER METASTATIC
     Dosage: 100 MG/M2, BIW (2 HOUR INFUSION, DAY 1 AND 2)
     Route: 042
  4. FLUOROURACIL. [Suspect]
     Active Substance: FLUOROURACIL
     Indication: COLON CANCER METASTATIC
     Dosage: 1 DF, BIW (400 MG/M2 IV BOLUS, DAYS 1 - 2, 600 MG/M2 IV - 22-HOUR INFUSION, DAYS 1 - 2, Q2WK)
     Route: 040
     Dates: start: 20200603
  5. FLUOROURACIL. [Suspect]
     Active Substance: FLUOROURACIL
     Dosage: 1 DF, BIW (DOSE REDUCED BY 20%, Q2WK)
     Route: 065
     Dates: start: 2020
  6. OXALIPLATIN. [Suspect]
     Active Substance: OXALIPLATIN
     Indication: COLON CANCER METASTATIC
     Dosage: 85 MG/M2, BIW
     Route: 042
     Dates: start: 20200603
  7. VECTIBIX [Suspect]
     Active Substance: PANITUMUMAB
     Indication: COLON CANCER METASTATIC
     Dosage: UNK (DOSE REDUCED BY 20%)
     Route: 065
     Dates: start: 2020

REACTIONS (6)
  - Skin fissures [Recovering/Resolving]
  - Neutropenia [Unknown]
  - Thrombocytopenia [Unknown]
  - Asthenia [Recovered/Resolved]
  - Rash pustular [Recovering/Resolving]
  - Stomatitis [Recovered/Resolved]

NARRATIVE: CASE EVENT DATE: 2020
